FAERS Safety Report 25441743 (Version 1)
Quarter: 2025Q2

REPORT INFORMATION
  Report Type: Spontaneous
  Country: US (occurrence: US)
  Receive Date: 20250616
  Receipt Date: 20250616
  Transmission Date: 20250717
  Serious: Yes (Life-Threatening, Hospitalization, Other)
  Sender: GLENMARK
  Company Number: US-MLMSERVICE-20250529-PI524023-00314-1

PATIENT
  Age: 30 Year
  Sex: Male

DRUGS (1)
  1. THEOPHYLLINE [Suspect]
     Active Substance: THEOPHYLLINE
     Indication: Hydrocephalus
     Dosage: 200 MILLIGRAM, BID (EVERY 12 HOURS, VIA PEG TUBE, STARTING ON PHD 104, 200 MG TWICE A DAY VIA PEG TU
     Route: 065

REACTIONS (1)
  - Status epilepticus [Recovered/Resolved]
